FAERS Safety Report 6260852-X (Version None)
Quarter: 2009Q3

REPORT INFORMATION
  Report Type: 
  Country: None (occurrence: None)
  Receive Date: 20090707
  Receipt Date: 20090618
  Transmission Date: 20100115
  Serious: Yes (Other)
  Sender: FDA-Public Use
  Company Number: 1-18787110

PATIENT
  Age: 52 Year
  Sex: Male
  Weight: 38.9186 kg

DRUGS (8)
  1. ULTIVA [Suspect]
     Indication: ANAESTHESIA
     Dosage: 0.1-0.15 MCG/KG/MINUTE, INTRAVENOUS
     Route: 042
  2. LIDOCAINE [Concomitant]
  3. PROPOFOL [Concomitant]
  4. SEVOFLURANE [Concomitant]
  5. DOPAMINE HCL [Concomitant]
  6. OXYGEN [Concomitant]
  7. ROPIVACAINE [Concomitant]
  8. NALOXONE [Concomitant]

REACTIONS (2)
  - RESPIRATORY DEPRESSION [None]
  - URINE OUTPUT DECREASED [None]
